FAERS Safety Report 5638107-3 (Version None)
Quarter: 2008Q1

REPORT INFORMATION
  Report Type: 
  Country: None (occurrence: None)
  Receive Date: 20080221
  Receipt Date: 20080215
  Transmission Date: 20080703
  Serious: Yes (Hospitalization)
  Sender: FDA-Public Use
  Company Number: 2008SP000997

PATIENT
  Age: 64 Year
  Sex: Male
  Weight: 84 kg

DRUGS (9)
  1. TEMODAR [Suspect]
     Indication: ASTROCYTOMA, LOW GRADE
     Dosage: 75 MG/M2 QD
     Dates: start: 20071022, end: 20071203
  2. TEMODAR [Suspect]
     Indication: ASTROCYTOMA, LOW GRADE
     Dosage: 75 MG/M2 QD
     Dates: start: 20080104
  3. BACTRIM [Suspect]
     Indication: URINARY TRACT INFECTION
  4. WELLHUTRIN SR [Concomitant]
  5. ZOFRAN [Concomitant]
  6. VICODIN [Concomitant]
  7. KEPPRA [Concomitant]
  8. PEPCID [Concomitant]
  9. COUMADIN [Concomitant]

REACTIONS (8)
  - ARTHRALGIA [None]
  - ASTHENIA [None]
  - FALL [None]
  - HEPATIC ENZYME INCREASED [None]
  - HEPATIC STEATOSIS [None]
  - OEDEMA PERIPHERAL [None]
  - PNEUMOCYSTIS JIROVECI PNEUMONIA [None]
  - POLYARTHRITIS [None]
